FAERS Safety Report 5352998-5 (Version None)
Quarter: 2007Q2

REPORT INFORMATION
  Report Type: 
  Country: None (occurrence: None)
  Receive Date: 20070607
  Receipt Date: 20070529
  Transmission Date: 20071010
  Serious: No
  Sender: FDA-Public Use
  Company Number: 236674K06USA

PATIENT
  Age: 40 Year
  Sex: Female

DRUGS (3)
  1. REBIF [Suspect]
     Indication: MULTIPLE SCLEROSIS
     Dosage: 44 MCG, 3 IN 1 WEEKS, SUBCUTANEOUS
     Route: 058
     Dates: start: 20060801
  2. BACLOFEN [Concomitant]
  3. LEXAPRO [Concomitant]

REACTIONS (1)
  - LYMPHADENOPATHY [None]
